FAERS Safety Report 7298752-9 (Version None)
Quarter: 2011Q1

REPORT INFORMATION
  Report Type: 
  Country: None (occurrence: None)
  Receive Date: 20110217
  Receipt Date: 20110210
  Transmission Date: 20110831
  Serious: Yes (Death)
  Sender: FDA-Public Use
  Company Number: GB-ROCHE-689482

PATIENT
  Sex: Female
  Weight: 70 kg

DRUGS (8)
  1. RAMIPRIL [Concomitant]
  2. TRASTUZUMAB [Suspect]
     Dosage: FORM:IV, DATE OF LAST DOSE PRIOR TO SAE: 23 FEBRUARY 2010
     Route: 042
     Dates: start: 20100223
  3. PLACEBO [Suspect]
     Dosage: FORM: IV, DATE OF LAST DOSE PRIOR TO SAE: 22 FEBRUARY 2010
     Route: 042
     Dates: start: 20100222
  4. BENDROFLUAZIDE [Concomitant]
  5. DOCETAXEL [Suspect]
     Dosage: FORM:IV, ADTE OF LAST DOSE PRIOR TO SAE: 23 FEBRUARY 2010
     Route: 042
     Dates: start: 20100223
  6. ACETAMINOPHEN W/ CODEINE [Concomitant]
     Dates: start: 20091201
  7. AMLODIPINE [Concomitant]
  8. LORATADINE [Concomitant]
     Dates: start: 20100101

REACTIONS (2)
  - INTESTINAL PERFORATION [None]
  - NEUTROPENIC SEPSIS [None]
